FAERS Safety Report 22252452 (Version 3)
Quarter: 2023Q2

REPORT INFORMATION
  Report Type: Report from Study
  Country: DE (occurrence: DE)
  Receive Date: 20230426
  Receipt Date: 20230509
  Transmission Date: 20230721
  Serious: Yes (Hospitalization, Other)
  Sender: FDA-Public Use
  Company Number: DE-BRISTOL-MYERS SQUIBB COMPANY-BMS-2022-017659

PATIENT
  Age: 56 Year
  Sex: Male

DRUGS (20)
  1. RINVOQ [Suspect]
     Active Substance: UPADACITINIB
     Indication: Product used for unknown indication
     Dosage: 125 MILLIGRAM, QD
     Route: 048
  2. CHOLECALCIFEROL [Concomitant]
     Active Substance: CHOLECALCIFEROL
     Indication: Product used for unknown indication
     Dosage: 2XWEEK
     Route: 065
  3. CHOLECALCIFEROL [Concomitant]
     Active Substance: CHOLECALCIFEROL
     Indication: Product used for unknown indication
     Dosage: 2XWEEK
     Route: 065
  4. CHOLECALCIFEROL TEVA [Concomitant]
     Indication: Product used for unknown indication
     Dosage: 2XWEEK
     Route: 065
  5. NEVIRAPINE HEUMANN [Concomitant]
     Indication: Product used for unknown indication
     Dosage: 400 MG 1X/DAY
     Route: 065
  6. MIRTAZAPINE [Concomitant]
     Active Substance: MIRTAZAPINE
     Indication: Product used for unknown indication
     Dosage: 15 MG, 1X/DAY
     Route: 065
  7. ORENCIA [Suspect]
     Active Substance: ABATACEPT
     Indication: Rheumatoid arthritis
     Dosage: 125 MILLIGRAM, QWK
     Route: 058
     Dates: end: 20211117
  8. ORENCIA [Suspect]
     Active Substance: ABATACEPT
     Indication: Rheumatoid arthritis
     Route: 065
  9. FOLIC ACID [Concomitant]
     Active Substance: FOLIC ACID
     Indication: Product used for unknown indication
     Dosage: 1XWEEK
     Route: 065
  10. FOLIC ACID [Concomitant]
     Active Substance: FOLIC ACID
     Indication: Product used for unknown indication
     Dosage: 1XWEEK
     Route: 065
  11. GLYCOPYRRONIUM\INDACATEROL [Concomitant]
     Active Substance: GLYCOPYRRONIUM\INDACATEROL
     Indication: Product used for unknown indication
     Dosage: 1X/DAY
     Route: 065
  12. GLYCOPYRRONIUM\INDACATEROL [Concomitant]
     Active Substance: GLYCOPYRRONIUM\INDACATEROL
     Indication: Product used for unknown indication
     Dosage: 1X/DAY
     Route: 065
  13. METHOTREXATE [Suspect]
     Active Substance: METHOTREXATE
     Indication: Product used for unknown indication
     Dosage: 20 MILLIGRAM, QWK
     Route: 065
  14. METHOTREXATE [Suspect]
     Active Substance: METHOTREXATE
     Indication: Product used for unknown indication
     Route: 065
  15. METHOTREXATE [Suspect]
     Active Substance: METHOTREXATE
     Indication: Product used for unknown indication
     Route: 065
  16. Emtricitabin/Tenofovir [Concomitant]
     Indication: Product used for unknown indication
     Dosage: 200/245 MG
     Route: 065
  17. NEVIRAPINE [Concomitant]
     Active Substance: NEVIRAPINE
     Indication: Product used for unknown indication
     Dosage: 400 MG 1X/DAY
     Route: 065
  18. EMTRICITABINE/TENOFOVIR DISOPROXIL AL [Concomitant]
     Indication: Product used for unknown indication
     Dosage: 200/245 MG
     Route: 065
  19. VENLAFAXINE [Concomitant]
     Active Substance: VENLAFAXINE HYDROCHLORIDE
     Indication: Product used for unknown indication
     Route: 065
  20. VENLAFAXINE AXUNIO [Concomitant]
     Indication: Product used for unknown indication
     Route: 065

REACTIONS (11)
  - Conjunctival haemorrhage [Not Recovered/Not Resolved]
  - Lung disorder [Unknown]
  - Tinea pedis [Unknown]
  - Aphthous ulcer [Recovered/Resolved]
  - Aphthous ulcer [Unknown]
  - Rheumatoid arthritis [Recovered/Resolved]
  - Herpes simplex [Recovered/Resolved]
  - Chronic obstructive pulmonary disease [Unknown]
  - Constipation [Not Recovered/Not Resolved]
  - Pulmonary fibrosis [Unknown]
  - Weight increased [Not Recovered/Not Resolved]

NARRATIVE: CASE EVENT DATE: 20210520
